FAERS Safety Report 9305107 (Version 2)
Quarter: 2013Q3

REPORT INFORMATION
  Report Type: Report from Study
  Country: JP (occurrence: JP)
  Receive Date: 20130523
  Receipt Date: 20130808
  Transmission Date: 20140515
  Serious: Yes (Death, Hospitalization, Other)
  Sender: FDA-Public Use
  Company Number: PHHY2011JP30221

PATIENT
  Age: 77 Year
  Sex: Female
  Weight: 49 kg

DRUGS (55)
  1. RED CELLS [Concomitant]
     Dosage: 4 DF, DAILY
     Dates: start: 20110704
  2. RED CELLS [Concomitant]
     Dosage: 4 DF, DAILY
     Dates: start: 20110725
  3. RED CELLS [Concomitant]
     Dosage: 4 DF, DAILY
     Dates: start: 20110815
  4. RED CELLS [Concomitant]
     Dosage: 4 DF, DAILY
     Dates: start: 20110905
  5. RED CELLS [Concomitant]
     Dosage: 4 DF, DAILY
     Dates: start: 20110926
  6. RED CELLS [Concomitant]
     Dosage: 4 DF, DAILY
     Dates: start: 20111013
  7. RED CELLS [Concomitant]
     Dosage: 4 DF, DAILY
     Dates: start: 20111031
  8. RED CELLS [Concomitant]
     Dosage: 4 DF, DAILY
     Dates: start: 20111117
  9. RED CELLS [Concomitant]
     Dosage: 4 DF, DAILY
     Dates: start: 20111205
  10. RED CELLS [Concomitant]
     Dosage: 4 DF, DAILY
     Dates: start: 20111226
  11. RED CELLS [Concomitant]
     Dosage: 4 DF, DAILY
     Dates: start: 20120116
  12. RED CELLS [Concomitant]
     Dosage: 4 DF, DAILY
     Dates: start: 20120206
  13. RED CELLS [Concomitant]
     Dosage: 4 DF, DAILY
     Dates: start: 20120220
  14. RED CELLS [Concomitant]
     Dosage: 4 DF, DAILY
     Dates: start: 20120312
  15. LACB-R [Concomitant]
     Indication: PROPHYLAXIS
     Dosage: 3 G, UNK
     Dates: start: 20110706
  16. LACB-R [Concomitant]
     Dosage: 3 G, UNK
     Dates: end: 20111104
  17. RIFAMPICIN [Concomitant]
     Indication: PROPHYLAXIS
     Dosage: 450 MG, UNK
     Dates: start: 20110716, end: 20110720
  18. PRIMOBOLAN [Concomitant]
     Indication: MYELODYSPLASTIC SYNDROME
     Dosage: 15 MG, UNK
     Dates: start: 20110328, end: 20110802
  19. ICL670A [Suspect]
     Indication: MYELODYSPLASTIC SYNDROME
     Dosage: 875 MG, DAILY
     Route: 048
     Dates: start: 20081006, end: 20100112
  20. ICL670A [Suspect]
     Dosage: 875 MG, DAILY
     Route: 048
     Dates: start: 20100129, end: 20100209
  21. ICL670A [Suspect]
     Dosage: 875 MG, DAILY
     Route: 048
     Dates: start: 20100309, end: 20110529
  22. ICL670A [Suspect]
     Dosage: 750 MG, DAILY
     Route: 048
     Dates: start: 20110530, end: 20110705
  23. ICL670A [Suspect]
     Dosage: 625 MG, DAILY
     Route: 048
     Dates: start: 20110803, end: 20120327
  24. BAKTAR [Suspect]
     Indication: PROPHYLAXIS
     Dosage: 1 DF, DAILY
     Route: 048
     Dates: start: 20110709, end: 20110715
  25. BAKTAR [Suspect]
     Dosage: 4 DF, DAILY
     Route: 048
     Dates: start: 20110716, end: 20110721
  26. BAKTAR [Suspect]
     Dosage: 1 DF, DAILY
     Route: 048
     Dates: start: 20110721, end: 20120327
  27. DESFERAL [Concomitant]
     Indication: IRON OVERLOAD
     Dosage: 500 MG, UNK
     Route: 030
     Dates: start: 20070705
  28. DESFERAL [Concomitant]
     Dosage: 100 MG
     Route: 030
     Dates: start: 20100305
  29. DESFERAL [Concomitant]
     Dosage: 500 MG, UNK
     Route: 030
     Dates: end: 20110715
  30. THYRADIN S [Concomitant]
     Indication: HYPOTHYROIDISM
     Dosage: 75 UG, UNK
     Route: 048
  31. THYRADIN S [Concomitant]
     Dosage: 100 UG, UNK
     Route: 048
  32. THYRADIN S [Concomitant]
     Dosage: 125 UG, UNK
     Route: 048
  33. THYRADIN S [Concomitant]
     Dosage: 150 UG, UNK
     Route: 048
     Dates: end: 20120327
  34. SELBEX [Concomitant]
     Dosage: 150 MG
     Route: 048
  35. SELBEX [Concomitant]
     Dosage: 50 MG
     Route: 048
     Dates: end: 20100322
  36. GLAKAY [Concomitant]
     Indication: HYPOTHYROIDISM
     Dosage: 45 MG
     Route: 048
     Dates: start: 20090315, end: 20090315
  37. ALFAROL [Concomitant]
     Indication: HYPOTHYROIDISM
     Dosage: 1 UG
     Route: 048
     Dates: end: 20090315
  38. TAKEPRON [Concomitant]
     Dosage: 15 MG
     Route: 048
     Dates: start: 20100121
  39. TAKEPRON [Concomitant]
     Dosage: 10 MG, UNK
     Route: 048
     Dates: end: 20110327
  40. TETRAMIDE [Concomitant]
     Indication: HYPOTHYROIDISM
     Dosage: 10 MG
     Route: 048
     Dates: start: 20100218, end: 20100322
  41. RED CELLS [Concomitant]
     Dosage: 4 DF, DAILY
     Dates: start: 20081006, end: 20090629
  42. RED CELLS [Concomitant]
     Dosage: 4 DF, DAILY
     Dates: start: 20101025
  43. RED CELLS [Concomitant]
     Dosage: 4 DF, DAILY
     Dates: start: 20101206
  44. RED CELLS [Concomitant]
     Dosage: 4 DF, DAILY
     Dates: start: 20101227
  45. RED CELLS [Concomitant]
     Dosage: 4 DF, DAILY
     Dates: start: 20110112
  46. RED CELLS [Concomitant]
     Dosage: 4 DF, DAILY
     Dates: start: 20110131
  47. RED CELLS [Concomitant]
     Dosage: 4 DF, DAILY
     Dates: start: 20110204
  48. RED CELLS [Concomitant]
     Dosage: 4 DF, DAILY
     Dates: start: 20110215
  49. RED CELLS [Concomitant]
     Dosage: 2 DF, DAILY
     Dates: start: 20110319
  50. RED CELLS [Concomitant]
     Dosage: 4 DF, DAILY
     Dates: start: 20110323
  51. RED CELLS [Concomitant]
     Dosage: 4 DF, DAILY
     Dates: start: 20110418
  52. RED CELLS [Concomitant]
     Dosage: 4 DF, DAILY
     Dates: start: 20110502
  53. RED CELLS [Concomitant]
     Dosage: 4 DF, DAILY
     Dates: start: 20110516
  54. RED CELLS [Concomitant]
     Dosage: 4 DF, DAILY
     Dates: start: 20110530
  55. RED CELLS [Concomitant]
     Dosage: 4 DF, DAILY
     Dates: start: 20110620

REACTIONS (12)
  - Death [Fatal]
  - Gastric ulcer haemorrhage [Recovered/Resolved]
  - White blood cell count decreased [Recovered/Resolved]
  - Abdominal pain [Recovered/Resolved]
  - Pneumonia staphylococcal [Recovered/Resolved]
  - Pleural fibrosis [Unknown]
  - Alanine aminotransferase increased [Unknown]
  - Serum ferritin increased [Unknown]
  - C-reactive protein increased [Unknown]
  - Renal impairment [Recovered/Resolved]
  - Disuse syndrome [Recovered/Resolved]
  - Depressed mood [Unknown]
